FAERS Safety Report 6467652-6 (Version None)
Quarter: 2009Q4

REPORT INFORMATION
  Report Type: 
  Country: None (occurrence: None)
  Receive Date: 20091202
  Receipt Date: 20091120
  Transmission Date: 20100525
  Serious: Yes (Other)
  Sender: FDA-Public Use
  Company Number: PHHY2009JP47252

PATIENT
  Age: 49 Year
  Sex: Female

DRUGS (3)
  1. DIOVAN HCT [Suspect]
     Indication: HYPERTENSION
     Dosage: 1 DF, UNK
     Route: 048
     Dates: start: 20091017, end: 20091020
  2. PLAVIX [Concomitant]
     Dosage: 50 MG, UNK
     Route: 048
     Dates: start: 20080620
  3. CRESTOR [Concomitant]
     Dosage: 2.5 MG, UNK
     Route: 048
     Dates: start: 20080620

REACTIONS (6)
  - ANXIETY [None]
  - CHILLS [None]
  - FEELING ABNORMAL [None]
  - PRESYNCOPE [None]
  - VAGUS NERVE DISORDER [None]
  - VOMITING [None]
